FAERS Safety Report 4751748-0 (Version None)
Quarter: 2005Q3

REPORT INFORMATION
  Report Type: 
  Country: None (occurrence: None)
  Receive Date: 20050822
  Receipt Date: 20050810
  Transmission Date: 20060218
  Serious: Yes (Other)
  Sender: FDA-Public Use
  Company Number: 2005RR-00640

PATIENT
  Age: 4 Year
  Sex: Male
  Weight: 17 kg

DRUGS (5)
  1. ACYCLOVIR [Suspect]
     Indication: ENCEPHALITIS HERPES
     Dosage: SEE IMAGE
     Route: 042
  2. VALPROIC ACID [Suspect]
     Indication: CONVULSION
     Dosage: 175 MG, BID, ORAL; 300 MG, TID, IV BOLUS
  3. PHENYTOIN [Suspect]
     Indication: CONVULSION
     Dosage: SEE IMAGE
     Route: 048
  4. PARACETAMOL [Concomitant]
  5. ACETYLSALYCYLIC ACID LYSINATE [Concomitant]

REACTIONS (3)
  - ANTICONVULSANT DRUG LEVEL INCREASED [None]
  - DRUG INTERACTION [None]
  - PARTIAL SEIZURES [None]
